FAERS Safety Report 9660786 (Version 1)
Quarter: 2013Q4

REPORT INFORMATION
  Report Type: Spontaneous
  Country: US (occurrence: US)
  Receive Date: 20131031
  Receipt Date: 20131031
  Transmission Date: 20140711
  Serious: No
  Sender: FDA-Public Use
  Company Number: US-ENDO PHARMACEUTICALS INC.-HCDA20120068

PATIENT
  Sex: Female

DRUGS (4)
  1. HYDROCODONE/ACETAMINOPHEN 10MG/325MG [Suspect]
     Indication: BREAKTHROUGH PAIN
     Dosage: 10/325MG
     Route: 048
     Dates: end: 2012
  2. OPANA ER [Concomitant]
     Indication: BACK PAIN
     Route: 048
     Dates: start: 2012
  3. OPANA ER [Concomitant]
     Route: 048
     Dates: start: 2012
  4. LIDODERM [Concomitant]
     Indication: PRODUCT USED FOR UNKNOWN INDICATION
     Dosage: UNKNOWN
     Route: 062

REACTIONS (2)
  - Malaise [Unknown]
  - Incorrect dose administered [Unknown]
